FAERS Safety Report 9246390 (Version 1)
Quarter: 2013Q2

REPORT INFORMATION
  Report Type: Report from Study
  Country: CA (occurrence: CA)
  Receive Date: 20130422
  Receipt Date: 20130422
  Transmission Date: 20140414
  Serious: Yes (Hospitalization)
  Sender: FDA-Public Use
  Company Number: CA-JNJFOC-20130408854

PATIENT
  Age: 48 Year
  Sex: Male
  Weight: 85.8 kg

DRUGS (2)
  1. REMICADE [Suspect]
     Indication: CROHN^S DISEASE
     Route: 042
     Dates: start: 2004
  2. PARIET [Concomitant]
     Route: 048

REACTIONS (4)
  - Syncope [Unknown]
  - Loss of consciousness [Unknown]
  - Fall [Unknown]
  - Dizziness [Unknown]
